FAERS Safety Report 9928994 (Version 1)
Quarter: 2014Q1

REPORT INFORMATION
  Report Type: Spontaneous
  Country: US (occurrence: None)
  Receive Date: 20140225
  Receipt Date: 20140225
  Transmission Date: 20141002
  Serious: Yes (Other)
  Sender: FDA-Public Use
  Company Number: 2190186

PATIENT
  Sex: Male

DRUGS (1)
  1. CYTARABINE [Suspect]
     Dosage: UKNOWN; LAST DOSE GIVEN ON 06  FEB 2014,(2 DAY)
     Dates: start: 20140204

REACTIONS (5)
  - Hypotension [None]
  - Hypoperfusion [None]
  - Urine output decreased [None]
  - Pyrexia [None]
  - Sepsis [None]
